FAERS Safety Report 7135319-7 (Version None)
Quarter: 2010Q4

REPORT INFORMATION
  Report Type: 
  Country: None (occurrence: None)
  Receive Date: 20101203
  Receipt Date: 20101125
  Transmission Date: 20110411
  Serious: Yes (Congenital Anomaly)
  Sender: FDA-Public Use
  Company Number: B0687126B

PATIENT

DRUGS (6)
  1. ZIAGEN [Suspect]
     Indication: HIV INFECTION
     Dosage: 600MG PER DAY
     Dates: start: 20091012, end: 20091022
  2. RETROVIR [Concomitant]
     Indication: HIV INFECTION
     Dosage: 600MG PER DAY
     Route: 048
     Dates: start: 20090921, end: 20091012
  3. EPIVIR [Concomitant]
     Indication: HIV INFECTION
     Dosage: 300MG PER DAY
     Route: 048
     Dates: start: 20090921, end: 20100125
  4. INVIRASE [Concomitant]
     Indication: HIV INFECTION
     Dosage: 2000MG PER DAY
     Route: 048
     Dates: start: 20090921, end: 20091012
  5. RITONAVIR [Concomitant]
     Indication: HIV INFECTION
     Dosage: 200MG PER DAY
     Route: 048
     Dates: start: 20090921, end: 20091012
  6. ZERIT [Concomitant]
     Indication: HIV INFECTION
     Dosage: 80MG PER DAY
     Route: 048
     Dates: start: 20091022, end: 20100125

REACTIONS (8)
  - ASCITES [None]
  - DRUG EXPOSURE DURING PREGNANCY [None]
  - HAEMORRHAGE INTRACRANIAL [None]
  - HYDROTHORAX [None]
  - PERICARDIAL EFFUSION [None]
  - PLEURISY [None]
  - PNEUMOTHORAX [None]
  - PREMATURE BABY [None]
